FAERS Safety Report 18942836 (Version 2)
Quarter: 2021Q1

REPORT INFORMATION
  Report Type: Report from Study
  Country: DE (occurrence: DE)
  Receive Date: 20210225
  Receipt Date: 20210310
  Transmission Date: 20210420
  Serious: Yes (Other)
  Sender: FDA-Public Use
  Company Number: DE-SUN PHARMACEUTICAL INDUSTRIES LTD-2020RR-268884

PATIENT
  Age: 83 Year
  Sex: Male

DRUGS (6)
  1. METOPROLOL. [Concomitant]
     Active Substance: METOPROLOL
     Indication: PRE-EXISTING DISEASE
     Dosage: 200 MILLIGRAM, DAILY
     Route: 048
  2. RAMILICH [Concomitant]
     Active Substance: RAMIPRIL
     Indication: PRE-EXISTING DISEASE
     Dosage: 10 MILLIGRAM, DAILY
     Route: 048
  3. METFORMIN [Concomitant]
     Active Substance: METFORMIN HYDROCHLORIDE
     Indication: PRE-EXISTING DISEASE
     Dosage: 1000 MILLIGRAM, BID
     Route: 048
     Dates: start: 20210107
  4. JARDIANCE [Concomitant]
     Active Substance: EMPAGLIFLOZIN
     Indication: PRE-EXISTING DISEASE
     Dosage: 10 MILLIGRAM, DAILY
     Route: 048
  5. SIMVAHEXAL [Concomitant]
     Active Substance: SIMVASTATIN
     Indication: PRE-EXISTING DISEASE
     Dosage: 20 MILLIGRAM, DAILY
     Route: 048
  6. ODOMZO [Suspect]
     Active Substance: SONIDEGIB
     Indication: BASAL CELL CARCINOMA
     Dosage: 200 MILLIGRAM, DAILY
     Route: 048
     Dates: start: 20201008, end: 20201104

REACTIONS (3)
  - Hyperglycaemia [Not Recovered/Not Resolved]
  - Gait disturbance [Unknown]
  - Hypothyroidism [Not Recovered/Not Resolved]

NARRATIVE: CASE EVENT DATE: 20201015
